FAERS Safety Report 6150807-8 (Version None)
Quarter: 2009Q2

REPORT INFORMATION
  Report Type: 
  Country: None (occurrence: None)
  Receive Date: 20090409
  Receipt Date: 20090330
  Transmission Date: 20091009
  Serious: Yes (Hospitalization)
  Sender: FDA-Public Use
  Company Number: FR-MERCK-0903FRA00051

PATIENT
  Age: 88 Year
  Sex: Female
  Weight: 92 kg

DRUGS (6)
  1. SINGULAIR [Suspect]
     Indication: ASTHMA
     Route: 048
     Dates: start: 20061211, end: 20080605
  2. ASPIRIN LYSINE [Concomitant]
     Indication: PROPHYLAXIS
     Route: 048
  3. INSULIN GLARGINE [Concomitant]
     Indication: TYPE 1 DIABETES MELLITUS
     Route: 058
  4. LEVOTHYROXINE SODIUM [Concomitant]
     Indication: HYPOTHYROIDISM
     Route: 048
  5. ACETAMINOPHEN [Concomitant]
     Route: 048
  6. BECLOMETHASONE DIPROPIONATE AND FORMOTEROL FUMARATE [Concomitant]

REACTIONS (2)
  - DIARRHOEA [None]
  - RENAL FAILURE [None]
